FAERS Safety Report 24006877 (Version 1)
Quarter: 2024Q2

REPORT INFORMATION
  Report Type: Spontaneous
  Country: IN (occurrence: IN)
  Receive Date: 20240624
  Receipt Date: 20240624
  Transmission Date: 20240716
  Serious: Yes (Death, Other)
  Sender: FDA-Public Use
  Company Number: IN-BAYER-2024A090107

PATIENT
  Age: 61 Year
  Sex: Male
  Weight: 80.2 kg

DRUGS (7)
  1. ULTRAVIST [Suspect]
     Active Substance: IOPROMIDE
     Indication: Coronary angioplasty
     Dosage: 100 ML, ONCE
     Route: 042
     Dates: start: 20240620, end: 20240620
  2. Cardivas [Concomitant]
     Indication: Blood pressure measurement
     Dosage: 12.5 MG
     Route: 048
  3. SPIRONOLACTONE\TORSEMIDE [Concomitant]
     Active Substance: SPIRONOLACTONE\TORSEMIDE
     Indication: Cardiac failure
     Dosage: 10 MG
     Route: 048
  4. Arney [Concomitant]
     Indication: Cardiac failure
     Dosage: 50 MG
     Route: 048
  5. ASPIRIN\ATORVASTATIN [Concomitant]
     Active Substance: ASPIRIN\ATORVASTATIN
     Indication: Cardiac disorder
     Dosage: 1 DF, QD
     Dates: start: 20240607
  6. MINERALS\VITAMINS [Concomitant]
     Active Substance: MINERALS\VITAMINS
     Indication: Vitamin supplementation
     Dosage: 1 DF, QD
  7. CHOLECALCIFEROL [Concomitant]
     Active Substance: CHOLECALCIFEROL
     Indication: Vitamin supplementation
     Dosage: ONCE PER WEEK

REACTIONS (1)
  - Cardiac arrest [Fatal]

NARRATIVE: CASE EVENT DATE: 20240620
